FAERS Safety Report 16893063 (Version 1)
Quarter: 2019Q4

REPORT INFORMATION
  Report Type: Spontaneous
  Country: CA (occurrence: CA)
  Receive Date: 20191008
  Receipt Date: 20191008
  Transmission Date: 20200122
  Serious: Yes (Disabling)
  Sender: FDA-Public Use
  Company Number: CA-ROCHE-2420189

PATIENT
  Age: 69 Year
  Sex: Female

DRUGS (3)
  1. ALECENSARO [Suspect]
     Active Substance: ALECTINIB
     Indication: ANAPLASTIC LYMPHOMA KINASE GENE MUTATION
  2. ALECENSARO [Suspect]
     Active Substance: ALECTINIB
     Indication: LUNG NEOPLASM MALIGNANT
     Route: 048
  3. FRAGMIN [Concomitant]
     Active Substance: DALTEPARIN SODIUM
     Route: 042

REACTIONS (3)
  - Haematoma [Recovered/Resolved]
  - Haemoglobin decreased [Recovered/Resolved]
  - Haematoma muscle [Recovered/Resolved]
